FAERS Safety Report 11982685 (Version 2)
Quarter: 2016Q1

REPORT INFORMATION
  Report Type: Report from Study
  Country: US (occurrence: US)
  Receive Date: 20160201
  Receipt Date: 20160226
  Transmission Date: 20160526
  Serious: Yes (Hospitalization)
  Sender: FDA-Public Use
  Company Number: US-BAYER-2015-479762

PATIENT
  Age: 55 Year
  Sex: Female

DRUGS (5)
  1. STIVARGA [Suspect]
     Active Substance: REGORAFENIB
     Indication: COLORECTAL CANCER STAGE IV
     Dosage: 40 MG, QD
     Route: 048
     Dates: start: 20151201
  2. HYDROCODONE [Concomitant]
     Active Substance: HYDROCODONE
  3. STIVARGA [Suspect]
     Active Substance: REGORAFENIB
     Indication: COLORECTAL CANCER STAGE IV
     Dosage: 160 MG, QD
     Route: 048
     Dates: start: 20151123, end: 20151201
  4. STIVARGA [Suspect]
     Active Substance: REGORAFENIB
     Indication: COLORECTAL CANCER STAGE IV
     Dosage: 40 MG, BID
     Route: 048
  5. STIVARGA [Suspect]
     Active Substance: REGORAFENIB
     Indication: COLORECTAL CANCER STAGE IV
     Dosage: 40 MG, QD
     Route: 048

REACTIONS (11)
  - Transfusion [Recovered/Resolved]
  - Back pain [Recovered/Resolved]
  - Dehydration [None]
  - Myalgia [Not Recovered/Not Resolved]
  - Fatigue [None]
  - Skin exfoliation [None]
  - Headache [None]
  - Platelet transfusion [Recovered/Resolved]
  - Oral pain [None]
  - Abdominal pain [Recovered/Resolved]
  - Pain in extremity [Not Recovered/Not Resolved]

NARRATIVE: CASE EVENT DATE: 2015
